FAERS Safety Report 19880948 (Version 1)
Quarter: 2021Q3

REPORT INFORMATION
  Report Type: Spontaneous
  Country: GB (occurrence: GB)
  Receive Date: 20210924
  Receipt Date: 20210924
  Transmission Date: 20211014
  Serious: Yes (Other)
  Sender: FDA-Public Use
  Company Number: GB-ASCEND THERAPEUTICS US, LLC-2118774

PATIENT
  Age: 56 Year
  Sex: Female
  Weight: 60.78 kg

DRUGS (3)
  1. ESTROGEL [Suspect]
     Active Substance: ESTRADIOL
     Indication: HORMONE REPLACEMENT THERAPY
     Route: 062
     Dates: start: 20210703
  2. ESTROGEL [Suspect]
     Active Substance: ESTRADIOL
  3. ESTRADIOL, NOS(ESTRADIOL, NOS)(ESTRADIOL)(80 GRAM) [Suspect]
     Active Substance: ESTRADIOL
     Route: 062
     Dates: start: 20210703

REACTIONS (5)
  - Lethargy [Recovering/Resolving]
  - Anxiety [Recovering/Resolving]
  - Therapeutic product effect decreased [None]
  - Night sweats [Recovering/Resolving]
  - Fatigue [Recovering/Resolving]
